FAERS Safety Report 14922569 (Version 8)
Quarter: 2018Q4

REPORT INFORMATION
  Report Type: Spontaneous
  Country: US (occurrence: US)
  Receive Date: 20180522
  Receipt Date: 20181203
  Transmission Date: 20190204
  Serious: Yes (Other)
  Sender: FDA-Public Use
  Company Number: US-BRISTOL-MYERS SQUIBB COMPANY-BMS-2018-046884

PATIENT
  Sex: Female

DRUGS (1)
  1. ORENCIA [Suspect]
     Active Substance: ABATACEPT
     Indication: RHEUMATOID ARTHRITIS
     Dosage: 125 MG, QWK
     Route: 058
     Dates: start: 201804

REACTIONS (10)
  - Dysphonia [Unknown]
  - Infection [Unknown]
  - Product storage error [Unknown]
  - Rhinorrhoea [Unknown]
  - Gastric ulcer [Unknown]
  - Bronchitis [Unknown]
  - Cough [Unknown]
  - Sneezing [Unknown]
  - Malaise [Unknown]
  - Pyrexia [Unknown]
